FAERS Safety Report 9313636 (Version 1)
Quarter: 2013Q2

REPORT INFORMATION
  Report Type: Spontaneous
  Country: CN (occurrence: CN)
  Receive Date: 20130528
  Receipt Date: 20130528
  Transmission Date: 20140414
  Serious: Yes (Other)
  Sender: FDA-Public Use
  Company Number: CN-ELI_LILLY_AND_COMPANY-CN201210006464

PATIENT
  Sex: Male
  Weight: 27 kg

DRUGS (1)
  1. CEFACLOR [Suspect]
     Indication: TONSILLITIS
     Dosage: 0.125 G, TID
     Route: 065
     Dates: end: 20100109

REACTIONS (5)
  - Loss of consciousness [Recovered/Resolved]
  - Pallor [Recovered/Resolved]
  - Vomiting [Recovered/Resolved]
  - Hypoaesthesia oral [Recovered/Resolved]
  - Somnolence [Recovered/Resolved]
